FAERS Safety Report 7620463-8 (Version None)
Quarter: 2011Q3

REPORT INFORMATION
  Report Type: 
  Country: None (occurrence: None)
  Receive Date: 20110719
  Receipt Date: 20110714
  Transmission Date: 20111222
  Serious: Yes (Other)
  Sender: FDA-Public Use
  Company Number: JP-PFIZER INC-2011159029

PATIENT
  Age: 40 Year
  Sex: Male

DRUGS (4)
  1. ZYVOX [Suspect]
  2. ZYVOX [Suspect]
     Indication: SOFT TISSUE INFECTION
  3. ZYVOX [Suspect]
     Dosage: 1200 MG, 1X/DAY
     Route: 041
     Dates: start: 20110524, end: 20110528
  4. ZYVOX [Suspect]
     Indication: STAPHYLOCOCCAL INFECTION
     Dosage: 1200 MG, 1X/DAY
     Route: 048
     Dates: start: 20110520, end: 20110523

REACTIONS (3)
  - NAUSEA [None]
  - HYPONATRAEMIA [None]
  - DIZZINESS [None]
